FAERS Safety Report 21111445 (Version 2)
Quarter: 2022Q3

REPORT INFORMATION
  Report Type: Spontaneous
  Country: CN (occurrence: CN)
  Receive Date: 20220721
  Receipt Date: 20220810
  Transmission Date: 20221027
  Serious: Yes (Other)
  Sender: FDA-Public Use
  Company Number: CN-MLMSERVICE-20220711-3665199-1

PATIENT
  Age: 29 Year
  Sex: Male

DRUGS (22)
  1. DEXAMETHASONE [Suspect]
     Active Substance: DEXAMETHASONE
     Indication: Burkitt^s lymphoma stage IV
     Dosage: 40 MG/D, D1-D5, EVERY 21 DAYS (DA-EPOCH-R), TOTAL NUMBER OF CYCLES: 5 ROUNDS
     Route: 065
     Dates: start: 2019, end: 2019
  2. DEXAMETHASONE [Suspect]
     Active Substance: DEXAMETHASONE
     Dosage: 40 MG, D1-D4: 3 ROUNDS
     Route: 065
     Dates: start: 201909, end: 201911
  3. ETOPOSIDE [Suspect]
     Active Substance: ETOPOSIDE
     Indication: Burkitt^s lymphoma stage IV
     Dosage: 50 MG/M2/D, D1-D4, 96-HOUR CONTINUOUS INFUSION, EVERY 21 DAYS (5 ROUNDS)
     Route: 065
     Dates: start: 2019, end: 2019
  4. DOXORUBICIN [Suspect]
     Active Substance: DOXORUBICIN
     Indication: Burkitt^s lymphoma stage IV
     Dosage: 50 MG/M2/D, D1-D4, 96-HOUR CONTINUOUS INFUSION, EVERY 21 DAYS (5 ROUNDS)
     Route: 065
     Dates: start: 2019, end: 2019
  5. RITUXIMAB [Suspect]
     Active Substance: RITUXIMAB
     Indication: Burkitt^s lymphoma stage IV
     Dosage: RITUXIMAB 375 MG/M2, D0, EVERY 21 DAYS (5 ROUNDS)
     Route: 065
     Dates: start: 2019, end: 2019
  6. RITUXIMAB [Suspect]
     Active Substance: RITUXIMAB
     Dosage: RITUXIMAB 375 MG/M2, D0, EVERY 21 DAYS (5 ROUNDS)
     Route: 065
     Dates: start: 201909, end: 201911
  7. CYCLOPHOSPHAMIDE [Suspect]
     Active Substance: CYCLOPHOSPHAMIDE
     Indication: Burkitt^s lymphoma stage IV
     Dosage: 750 MG/M2, D5, EVERY 21 DAYS (5 ROUNDS)
     Route: 065
     Dates: start: 2019, end: 2019
  8. VINCRISTINE [Suspect]
     Active Substance: VINCRISTINE
     Indication: Burkitt^s lymphoma stage IV
     Dosage: 0.4 MG/M2/D, D1-D4, 96-HOUR CONTINUOUS INFUSION, EVERY 21 DAYS (5 ROUNDS)
     Route: 065
     Dates: start: 2019
  9. GEMCITABINE [Suspect]
     Active Substance: GEMCITABINE
     Indication: Burkitt^s lymphoma stage IV
     Dosage: 1,000 MG/M2, D1, D8; ONCE EVERY 21 DAYS (3 ROUNDS)
     Route: 065
     Dates: start: 201909, end: 201911
  10. CISPLATIN [Suspect]
     Active Substance: CISPLATIN
     Indication: Burkitt^s lymphoma stage IV
     Dosage: 75 MG/M2, D1, ONCE EVERY 21 DAYS, AND THREE ROUNDS
     Route: 065
     Dates: start: 201909, end: 201911
  11. DEXAMETHASONE [Concomitant]
     Active Substance: DEXAMETHASONE
     Indication: Burkitt^s lymphoma stage IV
     Dosage: FOUR TIMES (FIRST LINE TREATMENT)
     Route: 037
     Dates: start: 2019, end: 2019
  12. DEXAMETHASONE [Concomitant]
     Active Substance: DEXAMETHASONE
     Dosage: INTRATHECAL INJECTIONS WERE PERFORMED TWICE (SECOND LINE TREATMENT)
     Route: 037
     Dates: start: 2019, end: 2019
  13. DEXAMETHASONE [Concomitant]
     Active Substance: DEXAMETHASONE
     Route: 042
     Dates: start: 2019
  14. METHOTREXATE [Concomitant]
     Active Substance: METHOTREXATE
     Indication: Burkitt^s lymphoma stage IV
     Dosage: 10 MG INTRATHECALLY INJECTED FOUR TIMES (ALONG WITH 1ST LINE CHEMOTHERAPY)
     Route: 037
     Dates: start: 2019, end: 2019
  15. METHOTREXATE [Concomitant]
     Active Substance: METHOTREXATE
     Route: 065
     Dates: start: 20191028
  16. METHOTREXATE [Concomitant]
     Active Substance: METHOTREXATE
     Dosage: INTRATHECAL INJECTIONS WERE PERFORMED TWICE (ALONG WITH 2ND LINE CHEMOTHERAPY)
     Route: 037
     Dates: start: 2019, end: 2019
  17. CYTARABINE [Concomitant]
     Active Substance: CYTARABINE
     Indication: Burkitt^s lymphoma stage IV
     Dosage: 30 MG INTRATHECALLY INJECTED FOUR TIMES
     Route: 037
     Dates: start: 2019, end: 2019
  18. CYTARABINE [Concomitant]
     Active Substance: CYTARABINE
     Dates: start: 20191028
  19. CYTARABINE [Concomitant]
     Active Substance: CYTARABINE
     Dosage: INTRATHECAL INJECTIONS WERE PERFORMED TWICE (ALONG WITH 2ND LINE CHEMOTHERAPY)
     Route: 037
     Dates: start: 2019, end: 2019
  20. EMTRICITABINE, TENOFOVIR ALAFENAMIDE [Concomitant]
     Indication: Antiretroviral therapy
     Dosage: 200 MG/25 MG
     Route: 048
     Dates: start: 20190522
  21. DOLUTEGRAVIR SODIUM [Concomitant]
     Active Substance: DOLUTEGRAVIR SODIUM
     Indication: Antiretroviral therapy
     Dates: start: 20190522
  22. VINCRISTINE [Concomitant]
     Active Substance: VINCRISTINE
     Indication: Burkitt^s lymphoma stage IV
     Route: 042

REACTIONS (2)
  - Myelosuppression [Unknown]
  - Therapy partial responder [Unknown]

NARRATIVE: CASE EVENT DATE: 20190101
